FAERS Safety Report 5750471-3 (Version None)
Quarter: 2008Q2

REPORT INFORMATION
  Report Type: 
  Country: None (occurrence: None)
  Receive Date: 20080528
  Receipt Date: 20071001
  Transmission Date: 20081010
  Serious: No
  Sender: FDA-Public Use
  Company Number: US-KINGPHARMUSA00001-K200701270

PATIENT

DRUGS (13)
  1. AVINZA [Suspect]
     Indication: BACK PAIN
     Dosage: 180 MG, QD
     Route: 048
     Dates: start: 20050101
  2. AVINZA [Suspect]
     Indication: VERTEBRAL INJURY
  3. BETAPACE [Concomitant]
     Indication: ATRIAL FIBRILLATION
     Dosage: 80 MG, 1/2 TAB, BID
     Route: 048
  4. CARDURA  /00639301/ [Concomitant]
     Indication: BLOOD PRESSURE
     Dosage: 4 MG, QD
     Route: 048
  5. COUMADIN [Concomitant]
     Dosage: 7.5 MG, QD
     Route: 048
  6. DIOVAN HCT [Concomitant]
     Dosage: 120/12.5 MG, QD
     Route: 048
  7. EXELON [Concomitant]
     Dosage: 3 MG, BID
     Route: 048
  8. EFFEXOR XR [Concomitant]
     Indication: DEPRESSION
     Dosage: 75 MG, QD
     Route: 048
  9. NEXIUM [Concomitant]
     Indication: GASTROOESOPHAGEAL REFLUX DISEASE
     Dosage: 40 MG, EVERY 12 HOURS
     Route: 048
  10. OMACOR /01403701/ [Concomitant]
     Indication: BLOOD CHOLESTEROL
     Dosage: 1.9 G 4 CAPSULES, QD
     Route: 048
  11. OXYCODONE HCL [Concomitant]
     Indication: BREAKTHROUGH PAIN
     Dosage: 5 MG, TID
     Route: 048
  12. PROSCAR [Concomitant]
     Indication: BENIGN PROSTATIC HYPERPLASIA
     Dosage: 5 MG, QD
     Route: 048
  13. ZOCOR [Concomitant]

REACTIONS (5)
  - BACK PAIN [None]
  - CHILLS [None]
  - INFLUENZA LIKE ILLNESS [None]
  - MYALGIA [None]
  - WITHDRAWAL SYNDROME [None]
